FAERS Safety Report 9600119 (Version 1)
Quarter: 2013Q4

REPORT INFORMATION
  Report Type: Spontaneous
  Country: US (occurrence: US)
  Receive Date: 20131004
  Receipt Date: 20131004
  Transmission Date: 20140711
  Serious: Yes (Other)
  Sender: FDA-Public Use
  Company Number: US-AMGEN-USASP2013032836

PATIENT
  Age: 44 Year
  Sex: Female
  Weight: 81.18 kg

DRUGS (6)
  1. ENBREL [Suspect]
     Indication: RHEUMATOID ARTHRITIS
     Dosage: 50 MG, QWK
  2. CELEXA                             /00582602/ [Concomitant]
     Dosage: 10 MG, UNK
     Route: 048
  3. WELLBUTRIN [Concomitant]
     Dosage: 75 MG, UNK
     Route: 048
  4. MULTIVITAMINS, PLAIN [Concomitant]
     Dosage: UNK
     Route: 048
  5. FOLIC ACID [Concomitant]
     Dosage: UNK
     Route: 048
  6. ASPIRIN [Concomitant]
     Dosage: 81 MG, UNK
     Route: 048

REACTIONS (1)
  - Candida infection [Recovered/Resolved]
